FAERS Safety Report 5989312-8 (Version None)
Quarter: 2008Q4

REPORT INFORMATION
  Report Type: 
  Country: None (occurrence: None)
  Receive Date: 20081210
  Receipt Date: 20081204
  Transmission Date: 20090506
  Serious: Yes (Hospitalization)
  Sender: FDA-Public Use
  Company Number: BE-ABBOTT-08P-013-0490940-00

PATIENT
  Sex: Female

DRUGS (9)
  1. HUMIRA [Suspect]
     Indication: RHEUMATOID ARTHRITIS
     Dates: start: 20050823
  2. HUMIRA [Suspect]
  3. METHOTREXATE [Concomitant]
     Indication: DRUG USE FOR UNKNOWN INDICATION
     Route: 030
  4. FOLIC ACID [Concomitant]
     Indication: DRUG USE FOR UNKNOWN INDICATION
     Route: 048
  5. FLUOXETINE HYDROCHLORIDE [Concomitant]
     Indication: DRUG USE FOR UNKNOWN INDICATION
     Route: 048
  6. PRAZEPAM [Concomitant]
     Indication: DRUG USE FOR UNKNOWN INDICATION
     Dosage: 3XDAY  1/2 TABS
     Route: 048
  7. ZOLPIDEM [Concomitant]
     Indication: DRUG USE FOR UNKNOWN INDICATION
     Route: 048
  8. CALCIUM CARBONATE [Concomitant]
     Indication: DRUG USE FOR UNKNOWN INDICATION
     Route: 048
  9. UNKNOWN [Concomitant]
     Indication: DRUG USE FOR UNKNOWN INDICATION
     Route: 048

REACTIONS (3)
  - CARTILAGE INJURY [None]
  - FALL [None]
  - MENISCUS LESION [None]
